FAERS Safety Report 13248113 (Version 3)
Quarter: 2017Q2

REPORT INFORMATION
  Report Type: Spontaneous
  Country: US (occurrence: US)
  Receive Date: 20170217
  Receipt Date: 20170412
  Transmission Date: 20170830
  Serious: Yes (Hospitalization)
  Sender: FDA-Public Use
  Company Number: US-VERTEX PHARMACEUTICALS-2017-000850

PATIENT
  Age: 17 Year
  Sex: Male

DRUGS (15)
  1. SULFAMETHOXAZOLE TRIMETHOPRIM [Concomitant]
     Active Substance: SULFAMETHOXAZOLE\TRIMETHOPRIM
  2. MONTELUKAST [Concomitant]
     Active Substance: MONTELUKAST SODIUM
  3. OXYCODONE [Concomitant]
     Active Substance: OXYCODONE
  4. HYDROCODONE BITARTRATE AND ACETAMINOPHEN [Concomitant]
     Active Substance: ACETAMINOPHEN\HYDROCODONE BITARTRATE
  5. ESOMEPRAZOLE MG [Concomitant]
  6. CHLORHEXIDINE GLUCONATE. [Concomitant]
     Active Substance: CHLORHEXIDINE GLUCONATE
     Dosage: 5 MG, UNK
  7. HUMALOG [Concomitant]
     Active Substance: INSULIN LISPRO
  8. ORKAMBI [Suspect]
     Active Substance: IVACAFTOR\LUMACAFTOR
     Indication: CYSTIC FIBROSIS
     Dosage: BID
     Route: 048
     Dates: start: 20150728, end: 2017
  9. RIZATRIPTAN. [Concomitant]
     Active Substance: RIZATRIPTAN
  10. FLUCONAZOLE. [Concomitant]
     Active Substance: FLUCONAZOLE
  11. NYSTATIN. [Concomitant]
     Active Substance: NYSTATIN
  12. VANCOMYCIN [Concomitant]
     Active Substance: VANCOMYCIN
  13. VENTOLIN [Concomitant]
     Active Substance: ALBUTEROL SULFATE
  14. ZENPEP [Concomitant]
     Active Substance: PANCRELIPASE AMYLASE\PANCRELIPASE LIPASE\PANCRELIPASE PROTEASE
  15. BUPROPION. [Concomitant]
     Active Substance: BUPROPION

REACTIONS (2)
  - Infection [Unknown]
  - Hospitalisation [Unknown]

NARRATIVE: CASE EVENT DATE: 201701
